FAERS Safety Report 6580031-6 (Version None)
Quarter: 2010Q1

REPORT INFORMATION
  Report Type: 
  Country: None (occurrence: None)
  Receive Date: 20100212
  Receipt Date: 20100201
  Transmission Date: 20100710
  Serious: Yes (Hospitalization)
  Sender: FDA-Public Use
  Company Number: CN-MERCK-1002CHN00007

PATIENT
  Age: 31 Month
  Sex: Male
  Weight: 15 kg

DRUGS (3)
  1. PRIMAXIN [Suspect]
     Indication: SKIN INJURY
     Route: 041
     Dates: start: 20100201, end: 20100202
  2. PRIMAXIN [Suspect]
     Indication: PYREXIA
     Route: 041
     Dates: start: 20100201, end: 20100202
  3. DEXAMETHASONE [Concomitant]
     Route: 041

REACTIONS (1)
  - AGGRESSION [None]
